FAERS Safety Report 9125861 (Version 1)
Quarter: 2013Q1

REPORT INFORMATION
  Report Type: Spontaneous
  Country: US (occurrence: US)
  Receive Date: 20130228
  Receipt Date: 20130228
  Transmission Date: 20140127
  Serious: No
  Sender: FDA-Public Use
  Company Number: US-009507513-1302USA011763

PATIENT
  Sex: Female

DRUGS (2)
  1. PEG-INTRON [Suspect]
     Indication: HEPATITIS C
     Dosage: UNK
     Dates: start: 20100205, end: 20110304
  2. RIBAVIRIN [Suspect]
     Indication: HEPATITIS C
     Dosage: UNK
     Route: 048
     Dates: start: 20100205, end: 20110304

REACTIONS (7)
  - Therapeutic response decreased [Unknown]
  - Nausea [Unknown]
  - Malaise [Unknown]
  - Mental status changes [Unknown]
  - Metabolic acidosis [Unknown]
  - Dyspnoea [Unknown]
  - Visual acuity reduced [Unknown]
